FAERS Safety Report 17028062 (Version 2)
Quarter: 2019Q4

REPORT INFORMATION
  Report Type: Report from Study
  Country: MX (occurrence: MX)
  Receive Date: 20191113
  Receipt Date: 20191119
  Transmission Date: 20200122
  Serious: Yes (Other)
  Sender: FDA-Public Use
  Company Number: NVSC2019MX033966

PATIENT
  Sex: Female
  Weight: 71 kg

DRUGS (17)
  1. BROMAZEPAM [Concomitant]
     Active Substance: BROMAZEPAM
     Indication: EPILEPSY
     Dosage: 1.5 OT (HALF A YEAR AGO)
     Route: 048
  2. ALTEC [Concomitant]
     Indication: PRODUCT USED FOR UNKNOWN INDICATION
     Route: 065
  3. TRANSTEC [Concomitant]
     Active Substance: BUPRENORPHINE
     Indication: SPINAL PAIN
     Dosage: 0.5 DF (PATCH)
     Route: 062
  4. CO-DIOVAN [Suspect]
     Active Substance: HYDROCHLOROTHIAZIDE\VALSARTAN
     Indication: HYPERTENSION
     Dosage: 1 DF (HYDROCHLOROTHIAZIDE 160 MG, VALSARTAN 25 MG), QD (5 YEARS AGO)
     Route: 048
  5. OMEPRAZOLE. [Concomitant]
     Active Substance: OMEPRAZOLE
     Indication: PRODUCT USED FOR UNKNOWN INDICATION
     Route: 065
  6. LEVETIRACETAM. [Suspect]
     Active Substance: LEVETIRACETAM
     Indication: EPILEPSY
     Dosage: 1000 MG, BID (IN MORNING AND NIGHT) (3 YEARS AGO)
     Route: 065
  7. PLAVIX [Concomitant]
     Active Substance: CLOPIDOGREL BISULFATE
     Indication: ANTICOAGULANT THERAPY
     Dosage: 1 DF, QD
     Route: 048
     Dates: start: 2015
  8. UNIVAL [Concomitant]
     Indication: NAUSEA
     Dosage: UNK (AS NEEDED) (3 YEARS AGO)
     Route: 048
  9. SIFROL [Concomitant]
     Active Substance: PRAMIPEXOLE
     Indication: EPILEPSY
     Dosage: 2 MG, QD
     Route: 048
     Dates: start: 2015
  10. NEXIUM [Concomitant]
     Active Substance: ESOMEPRAZOLE MAGNESIUM
     Indication: PRODUCT USED FOR UNKNOWN INDICATION
     Route: 065
  11. PANTOPRAZOLE [Concomitant]
     Active Substance: PANTOPRAZOLE
     Indication: PRODUCT USED FOR UNKNOWN INDICATION
     Route: 065
  12. LEVACETAM [Concomitant]
     Indication: PRODUCT USED FOR UNKNOWN INDICATION
     Route: 065
  13. UNIVAL [Concomitant]
     Indication: ABDOMINAL PAIN UPPER
  14. MODIVAL [Concomitant]
     Indication: PRODUCT USED FOR UNKNOWN INDICATION
     Dosage: 1 DF, QD
     Route: 048
     Dates: start: 2015
  15. FRISIUM [Suspect]
     Active Substance: CLOBAZAM
     Indication: EPILEPSY
     Dosage: UNK
     Route: 048
     Dates: start: 2015
  16. VIVITAR [Concomitant]
     Active Substance: SPIRONOLACTONE
     Indication: FLUID RETENTION
     Dosage: 50 MG, QD (2 YEARS AGO)
     Route: 048
  17. MAGNESIUM VALPROATE [Concomitant]
     Active Substance: VALPROATE MAGNESIUM
     Indication: PRODUCT USED FOR UNKNOWN INDICATION
     Route: 065

REACTIONS (6)
  - Bleeding varicose vein [Unknown]
  - Meningitis [Unknown]
  - Thrombosis [Recovered/Resolved]
  - Oesophagitis [Unknown]
  - Gastric ulcer [Not Recovered/Not Resolved]
  - Anaemia [Not Recovered/Not Resolved]

NARRATIVE: CASE EVENT DATE: 2015
